FAERS Safety Report 9784804 (Version 2)
Quarter: 2014Q1

REPORT INFORMATION
  Report Type: Spontaneous
  Country: US (occurrence: US)
  Receive Date: 20131227
  Receipt Date: 20140110
  Transmission Date: 20141002
  Serious: Yes (Death)
  Sender: FDA-Public Use
  Company Number: US-BIOGENIDEC-2013BI121683

PATIENT
  Age: 56 Year
  Sex: Female
  Weight: 145 kg

DRUGS (2)
  1. AVONEX [Suspect]
     Indication: MULTIPLE SCLEROSIS
     Route: 030
     Dates: start: 20111002, end: 20120730
  2. COPAXONE [Concomitant]

REACTIONS (6)
  - Lethargy [Unknown]
  - Diabetes mellitus [Unknown]
  - Hypertension [Unknown]
  - Overweight [Unknown]
  - Pruritus [Unknown]
  - Death [Fatal]
